FAERS Safety Report 4490390-6 (Version None)
Quarter: 2004Q4

REPORT INFORMATION
  Report Type: 
  Country: None (occurrence: None)
  Receive Date: 20041027
  Receipt Date: 20041014
  Transmission Date: 20050328
  Serious: Yes (Hospitalization)
  Sender: FDA-Public Use
  Company Number: ALMO2004034

PATIENT
  Age: 45 Year
  Sex: Female

DRUGS (4)
  1. AXERT [Suspect]
     Dosage: 12.5 MG BID PO
     Route: 048
  2. ELAVIL [Concomitant]
  3. GABITRIL [Concomitant]
  4. VALIUM [Concomitant]

REACTIONS (3)
  - CONVULSION [None]
  - LOSS OF CONSCIOUSNESS [None]
  - SYNCOPE [None]
